FAERS Safety Report 18799625 (Version 1)
Quarter: 2021Q1

REPORT INFORMATION
  Report Type: Other
  Country: CN (occurrence: CN)
  Receive Date: 20210128
  Receipt Date: 20210128
  Transmission Date: 20210419
  Serious: Yes (Other)
  Sender: FDA-Public Use
  Company Number: CN-ROCHE-2753348

PATIENT
  Sex: Female

DRUGS (4)
  1. CIMETIDINE [Concomitant]
     Active Substance: CIMETIDINE
  2. BEVACIZUMAB. [Suspect]
     Active Substance: BEVACIZUMAB
     Indication: OVARIAN CANCER
     Route: 042
  3. DEXAMETHASONE. [Concomitant]
     Active Substance: DEXAMETHASONE
  4. PACLITAXEL. [Suspect]
     Active Substance: PACLITAXEL
     Indication: OVARIAN CANCER
     Route: 041

REACTIONS (5)
  - Nausea [Unknown]
  - Vomiting [Unknown]
  - Neurotoxicity [Unknown]
  - White blood cell count decreased [Unknown]
  - Diarrhoea [Unknown]
